FAERS Safety Report 4563557-6 (Version None)
Quarter: 2005Q1

REPORT INFORMATION
  Report Type: 
  Country: None (occurrence: None)
  Receive Date: 20050128
  Receipt Date: 20040923
  Transmission Date: 20050727
  Serious: No
  Sender: FDA-Public Use
  Company Number: US-GLAXOSMITHKLINE-A0527100A

PATIENT
  Age: 43 Year
  Sex: Female

DRUGS (3)
  1. WELLBUTRIN [Suspect]
     Indication: DEPRESSION
     Dosage: 75MG TWICE PER DAY
     Route: 048
  2. VALTREX [Concomitant]
  3. MULTIVITAMIN [Concomitant]

REACTIONS (4)
  - FEELING JITTERY [None]
  - HEART RATE INCREASED [None]
  - INSOMNIA [None]
  - SLEEP DISORDER [None]
